FAERS Safety Report 6283079-4 (Version None)
Quarter: 2009Q3

REPORT INFORMATION
  Report Type: 
  Country: None (occurrence: None)
  Receive Date: 20090724
  Receipt Date: 20090715
  Transmission Date: 20100115
  Serious: Yes (Hospitalization)
  Sender: FDA-Public Use
  Company Number: A0718709A

PATIENT
  Age: 35 Year
  Sex: Male
  Weight: 80.9 kg

DRUGS (4)
  1. AVANDIA [Suspect]
     Dosage: 4MG TWICE PER DAY
     Route: 048
     Dates: start: 20020101
  2. REGULAR INSULIN [Concomitant]
     Dates: start: 19910101, end: 20070617
  3. CLONIDINE [Concomitant]
  4. HYDRALAZINE HCL [Concomitant]

REACTIONS (6)
  - CARDIAC FAILURE CONGESTIVE [None]
  - HEPATIC FAILURE [None]
  - HEPATITIS [None]
  - JAUNDICE [None]
  - MYOCARDIAL INFARCTION [None]
  - RENAL FAILURE [None]
